FAERS Safety Report 8191266-3 (Version None)
Quarter: 2012Q1

REPORT INFORMATION
  Report Type: 
  Country: None (occurrence: None)
  Receive Date: 20120221
  Receipt Date: 20111118
  Transmission Date: 20120608
  Serious: No
  Sender: FDA-Public Use
  Company Number: 046037

PATIENT
  Age: 61 Year
  Sex: Male

DRUGS (1)
  1. LACOSAMIDE [Suspect]
     Dosage: (50 MG BID,..0 MG IN AM AND 50 MG IN PM)

REACTIONS (1)
  - DRUG INEFFECTIVE [None]
